FAERS Safety Report 11465079 (Version 5)
Quarter: 2016Q3

REPORT INFORMATION
  Report Type: Report from Study
  Country: TW (occurrence: TW)
  Receive Date: 20150907
  Receipt Date: 20160928
  Transmission Date: 20161109
  Serious: Yes (Hospitalization)
  Sender: FDA-Public Use
  Company Number: TW-BRISTOL-MYERS SQUIBB COMPANY-BMS-2015-059584

PATIENT
  Age: 56 Year
  Sex: Male
  Weight: 53 kg

DRUGS (12)
  1. ULTRACET [Concomitant]
     Active Substance: ACETAMINOPHEN\TRAMADOL HYDROCHLORIDE
     Indication: PAIN
     Dosage: 1 DF, Q6H
     Route: 048
     Dates: start: 20150805
  2. MEGESTROL [Concomitant]
     Active Substance: MEGESTROL
     Indication: CACHEXIA
     Dosage: 10 MG, QD
     Route: 048
     Dates: start: 20150805
  3. PROCHLORPERAZINE. [Concomitant]
     Active Substance: PROCHLORPERAZINE
     Indication: VOMITING
  4. SULINDAC. [Concomitant]
     Active Substance: SULINDAC
     Indication: PAIN
     Dosage: 200 MG, TID
     Route: 048
     Dates: start: 20150819
  5. CEFTRIAXONE. [Concomitant]
     Active Substance: CEFTRIAXONE
     Indication: INFECTION
     Dosage: 1 MG, Q12H
     Route: 065
     Dates: start: 20150826
  6. POTASSIUM CHLORIDE. [Concomitant]
     Active Substance: POTASSIUM CHLORIDE
     Indication: HYPOKALAEMIA
     Dosage: UNK
     Route: 065
     Dates: start: 20150826
  7. PROCHLORPERAZINE. [Concomitant]
     Active Substance: PROCHLORPERAZINE
     Indication: NAUSEA
     Dosage: 5 MG, TID
     Route: 048
     Dates: start: 20150805, end: 20150811
  8. CETUXIMAB [Suspect]
     Active Substance: CETUXIMAB
     Indication: COLORECTAL CANCER METASTATIC
     Route: 042
  9. MOSAPRIDE [Concomitant]
     Active Substance: MOSAPRIDE
     Indication: VOMITING
  10. LOPERAMIDE [Concomitant]
     Active Substance: LOPERAMIDE
     Indication: DIARRHOEA
     Dosage: 2 MG, Q6H
     Route: 048
     Dates: start: 20150805
  11. MOSAPRIDE [Concomitant]
     Active Substance: MOSAPRIDE
     Indication: NAUSEA
     Dosage: 5 MG, TID
     Route: 048
     Dates: start: 20150812
  12. CIMETIDINE [Concomitant]
     Active Substance: CIMETIDINE
     Indication: DUODENAL ULCER
     Dosage: 200 MG, BID
     Route: 048
     Dates: start: 20150819

REACTIONS (1)
  - Hyponatraemia [Recovered/Resolved]

NARRATIVE: CASE EVENT DATE: 20150826
